FAERS Safety Report 4981475-6 (Version None)
Quarter: 2006Q2

REPORT INFORMATION
  Report Type: 
  Country: None (occurrence: None)
  Receive Date: 20060419
  Receipt Date: 20060330
  Transmission Date: 20061013
  Serious: Yes (Hospitalization)
  Sender: FDA-Public Use
  Company Number: US200604001190

PATIENT
  Sex: Female

DRUGS (4)
  1. FORTEO [Suspect]
     Indication: OSTEOPOROSIS
     Dates: start: 20040701
  2. FORTEO PEN (FORTEO PEN) PEN, DISPOSABLE [Concomitant]
  3. OXYCONTIN [Concomitant]
  4. DARVOCET-N 100 [Concomitant]

REACTIONS (8)
  - CONTUSION [None]
  - EAR INFECTION [None]
  - FALL [None]
  - FRACTURE [None]
  - HEARING IMPAIRED [None]
  - HYPOACUSIS [None]
  - PAIN [None]
  - PHARMACEUTICAL PRODUCT COMPLAINT [None]
